FAERS Safety Report 24451201 (Version 2)
Quarter: 2024Q4

REPORT INFORMATION
  Report Type: Spontaneous
  Country: RU (occurrence: RU)
  Receive Date: 20241017
  Receipt Date: 20241018
  Transmission Date: 20250115
  Serious: Yes (Other)
  Sender: MERCK
  Company Number: RU-MFDS-2021000061-2410RUS005262

PATIENT
  Age: 52 Year
  Sex: Male

DRUGS (9)
  1. SITAGLIPTIN PHOSPHATE [Suspect]
     Active Substance: SITAGLIPTIN PHOSPHATE
     Indication: Type 2 diabetes mellitus
     Dosage: 100 MG / DAY
     Route: 048
     Dates: start: 202309, end: 202402
  2. SEMAGLUTIDE [Concomitant]
     Active Substance: SEMAGLUTIDE
     Indication: Type 2 diabetes mellitus
     Dosage: ONCE A WEEK WITH DOSE TITRATION, ACCORDING TO THE INSTRUCTIONS, UP TO 1 MG/WEEK
     Route: 058
     Dates: end: 202309
  3. METFORMIN [Concomitant]
     Active Substance: METFORMIN HYDROCHLORIDE
     Indication: Type 2 diabetes mellitus
     Dosage: 1000 MG/DAY
  4. METFORMIN [Concomitant]
     Active Substance: METFORMIN HYDROCHLORIDE
     Dosage: 2000 MG/DAY
  5. EZETIMIBE\ROSUVASTATIN [Concomitant]
     Active Substance: EZETIMIBE\ROSUVASTATIN
     Indication: Low density lipoprotein increased
     Dosage: 10 + 10 MG/DAY
  6. EZETIMIBE\ROSUVASTATIN [Concomitant]
     Active Substance: EZETIMIBE\ROSUVASTATIN
     Dosage: 20 + 10 MG/DAY
  7. INDAPAMIDE\PERINDOPRIL [Concomitant]
     Active Substance: INDAPAMIDE\PERINDOPRIL
     Dosage: 4 + 1.25 MG/DAY
  8. URSODIOL [Concomitant]
     Active Substance: URSODIOL
     Dosage: 1500 MG/DAY IN 3 DOSES
  9. ANGIOVIT [CYANOCOBALAMIN;FOLIC ACID;PYRIDOXINE HYDROCHLORIDE] [Concomitant]
     Indication: Blood homocysteine increased
     Dosage: 1 TABLET PER DAY

REACTIONS (3)
  - Diabetes mellitus inadequate control [Recovered/Resolved]
  - Drug effect less than expected [Unknown]
  - Weight increased [Recovered/Resolved]

NARRATIVE: CASE EVENT DATE: 20240201
